FAERS Safety Report 22653255 (Version 8)
Quarter: 2023Q4

REPORT INFORMATION
  Report Type: Report from Study
  Country: DE (occurrence: None)
  Receive Date: 20230629
  Receipt Date: 20231003
  Transmission Date: 20240109
  Serious: Yes (Hospitalization, Other)
  Sender: FDA-Public Use
  Company Number: DE-ROCHE-3101067

PATIENT
  Age: 51 Year
  Sex: Male
  Weight: 130 kg

DRUGS (14)
  1. OBINUTUZUMAB [Suspect]
     Active Substance: OBINUTUZUMAB
     Indication: Follicular lymphoma
     Dosage: DATE OF MOST RECENT DOSE OF OBINUTUZUMAB PRIOR TO AE ONSET: 28/FEB/2022, 04/APR/2022.
     Route: 041
     Dates: start: 20220228, end: 20220307
  2. OBINUTUZUMAB [Suspect]
     Active Substance: OBINUTUZUMAB
     Dosage: DATE OF MOST RECENT DOSE OF 1000 MG OF OBINUTUZUMAB PRIOR TO AE ONSET ON 11/JUL2022, 01/NOV/2022
     Route: 041
     Dates: start: 20220627, end: 20221101
  3. COPANLISIB [Suspect]
     Active Substance: COPANLISIB
     Indication: Follicular lymphoma
     Dosage: DATE OF MOST RECENT DOSE OF 60 MG OF COPANLISIB PRIOR TO AE ONSET ON 28/FEB/2022, 04/APR/2022, 07/MA
     Route: 041
     Dates: start: 20220228, end: 20220307
  4. COPANLISIB [Suspect]
     Active Substance: COPANLISIB
     Dosage: DATE OF MOST RECENT DOSE OF 60 MG COPANLISIB PRIOR TO AE ONSET ON 11/JUL/2022, 01/NOV/2022.
     Route: 041
     Dates: start: 20220627, end: 20221101
  5. CANDESARTAN [Concomitant]
     Active Substance: CANDESARTAN
     Indication: Hypertension
     Route: 065
     Dates: start: 20220223
  6. SULFAMETHOXAZOLE\TRIMETHOPRIM [Concomitant]
     Active Substance: SULFAMETHOXAZOLE\TRIMETHOPRIM
     Indication: Prophylaxis
     Dates: start: 20220228
  7. PANTOPRAZOLE [Concomitant]
     Active Substance: PANTOPRAZOLE
     Indication: Dyspepsia
     Dates: start: 20220307
  8. ACYCLOVIR [Concomitant]
     Active Substance: ACYCLOVIR
  9. AMLODIPINE BESYLATE [Concomitant]
     Active Substance: AMLODIPINE BESYLATE
  10. PIPERACILLIN SODIUM\TAZOBACTAM SODIUM [Concomitant]
     Active Substance: PIPERACILLIN SODIUM\TAZOBACTAM SODIUM
  11. AZITHROMYCIN [Concomitant]
     Active Substance: AZITHROMYCIN
  12. SULFAMETHOXAZOLE\TRIMETHOPRIM [Concomitant]
     Active Substance: SULFAMETHOXAZOLE\TRIMETHOPRIM
     Indication: Prophylaxis
     Dates: start: 20220627
  13. ACICLO [Concomitant]
     Indication: Prophylaxis
  14. COTRIM [Concomitant]
     Active Substance: SULFAMETHOXAZOLE\TRIMETHOPRIM
     Dosage: COTRIM 960MG MO+MI+FR 1-0-0
     Dates: start: 20220228

REACTIONS (5)
  - Gastritis [Recovered/Resolved]
  - COVID-19 pneumonia [Recovered/Resolved]
  - Blood glucose increased [Recovered/Resolved]
  - Blood pressure increased [Recovered/Resolved]
  - Blood glucose increased [Recovered/Resolved]

NARRATIVE: CASE EVENT DATE: 20220307
